FAERS Safety Report 20397103 (Version 2)
Quarter: 2022Q1

REPORT INFORMATION
  Report Type: Spontaneous
  Country: US (occurrence: US)
  Receive Date: 20220131
  Receipt Date: 20220201
  Transmission Date: 20220423
  Serious: No
  Sender: FDA-Public Use
  Company Number: US-ABBVIE-21K-163-3893830-00

PATIENT
  Age: 43 Year
  Sex: Male

DRUGS (1)
  1. HUMIRA [Suspect]
     Active Substance: ADALIMUMAB
     Indication: Psoriasis
     Route: 058
     Dates: start: 20210408, end: 202104

REACTIONS (3)
  - Tooth abscess [Not Recovered/Not Resolved]
  - Tooth infection [Not Recovered/Not Resolved]
  - Device use error [Unknown]

NARRATIVE: CASE EVENT DATE: 20210401
